FAERS Safety Report 9324542 (Version 1)
Quarter: 2013Q2

REPORT INFORMATION
  Report Type: Spontaneous
  Country: IT (occurrence: IT)
  Receive Date: 20130603
  Receipt Date: 20130603
  Transmission Date: 20140414
  Serious: Yes (Hospitalization)
  Sender: FDA-Public Use
  Company Number: IT-TEVA-408162ISR

PATIENT
  Age: 20 Year
  Sex: Male

DRUGS (3)
  1. IBUPROFEN [Suspect]
     Indication: OROPHARYNGEAL PAIN
     Dosage: 400 MILLIGRAM DAILY;
     Route: 048
     Dates: start: 20130206, end: 20130207
  2. OKI [Suspect]
     Indication: OROPHARYNGEAL PAIN
     Dosage: GRANULATE FOR ORAL SOLUTION
     Route: 048
     Dates: start: 20130205, end: 20130205
  3. SINECOD TOSSE SEDATIVO [Suspect]
     Indication: OROPHARYNGEAL PAIN
     Dosage: 1 DOSAGE FORMS DAILY;
     Route: 048
     Dates: start: 20130206, end: 20130207

REACTIONS (2)
  - Purpura [Recovering/Resolving]
  - Pruritus [Recovering/Resolving]
